FAERS Safety Report 23957069 (Version 1)
Quarter: 2024Q2

REPORT INFORMATION
  Report Type: Spontaneous
  Country: ES (occurrence: ES)
  Receive Date: 20240610
  Receipt Date: 20240610
  Transmission Date: 20240716
  Serious: Yes (Other)
  Sender: FDA-Public Use
  Company Number: ES-CELLTRION INC.-2024ES013564

PATIENT

DRUGS (4)
  1. INFLIXIMAB [Suspect]
     Active Substance: INFLIXIMAB
     Indication: Psoriatic arthropathy
     Dosage: 235 MILLIGRAM, 1 TOTAL
     Route: 058
     Dates: start: 20220421, end: 20220421
  2. INFLIXIMAB [Suspect]
     Active Substance: INFLIXIMAB
     Dosage: 235 MILLIGRAM, 1 TOTAL
     Route: 058
     Dates: start: 20220520, end: 20220520
  3. INFLECTRA [Concomitant]
     Active Substance: INFLIXIMAB-DYYB
     Indication: Immune tolerance induction
     Dosage: UNK
     Route: 042
     Dates: start: 20220620, end: 20220620
  4. INFLECTRA [Concomitant]
     Active Substance: INFLIXIMAB-DYYB
     Dosage: UNK
     Route: 042
     Dates: start: 20220801, end: 20220801

REACTIONS (7)
  - Throat irritation [Recovered/Resolved]
  - Dyspnoea [Recovered/Resolved]
  - Pruritus [Recovered/Resolved]
  - Pharyngotonsillitis [Recovered/Resolved]
  - Asthenia [Recovered/Resolved]
  - Tachycardia [Recovered/Resolved]
  - Product use issue [Unknown]

NARRATIVE: CASE EVENT DATE: 20220421
